FAERS Safety Report 19808768 (Version 3)
Quarter: 2021Q4

REPORT INFORMATION
  Report Type: Spontaneous
  Country: AU (occurrence: AU)
  Receive Date: 20210908
  Receipt Date: 20211012
  Transmission Date: 20220303
  Serious: Yes (Hospitalization, Other)
  Sender: FDA-Public Use
  Company Number: AU-MYLANLABS-2021M1058813

PATIENT
  Age: 33 Year
  Sex: Male

DRUGS (7)
  1. CLOZARIL [Suspect]
     Active Substance: CLOZAPINE
     Indication: Schizophrenia
     Dosage: 600 MILLIGRAM
     Route: 048
     Dates: start: 20200128
  2. CLOZARIL [Suspect]
     Active Substance: CLOZAPINE
     Dosage: 500 MILLIGRAM
     Route: 048
     Dates: start: 20200128
  3. CLOZARIL [Suspect]
     Active Substance: CLOZAPINE
     Dosage: 550 MILLIGRAM, QD
  4. FLUPENTIXOL [Concomitant]
     Active Substance: FLUPENTIXOL
     Dosage: 40 MILLIGRAM, BIWEEKLY
  5. OLANZAPINE [Concomitant]
     Active Substance: OLANZAPINE
     Dosage: 10 MILLIGRAM, PM
  6. TEMAZEPAM [Concomitant]
     Active Substance: TEMAZEPAM
     Dosage: 10 MILLIGRAM, PM
  7. METHADONE [Concomitant]
     Active Substance: METHADONE HYDROCHLORIDE
     Dosage: UNK

REACTIONS (12)
  - Left ventricular dilatation [Unknown]
  - Left ventricular dysfunction [Unknown]
  - Blood phosphorus decreased [Recovered/Resolved]
  - Blood urea decreased [Recovering/Resolving]
  - Blood alkaline phosphatase increased [Recovering/Resolving]
  - Blood glucose increased [Unknown]
  - Blood cholesterol increased [Unknown]
  - Blood triglycerides increased [Recovered/Resolved]
  - Tachycardia [Recovered/Resolved]
  - Ejection fraction decreased [Recovering/Resolving]
  - Mental impairment [Unknown]
  - Aggression [Unknown]

NARRATIVE: CASE EVENT DATE: 20200728
